FAERS Safety Report 6775309-7 (Version None)
Quarter: 2010Q2

REPORT INFORMATION
  Report Type: 
  Country: None (occurrence: None)
  Receive Date: 20100617
  Receipt Date: 20100607
  Transmission Date: 20101027
  Serious: Yes (Other)
  Sender: FDA-Public Use
  Company Number: US-PFIZER INC-2010071829

PATIENT
  Sex: Male
  Weight: 62.59 kg

DRUGS (2)
  1. LIPITOR [Suspect]
     Indication: CORONARY ARTERY OCCLUSION
     Dosage: 10 MG, 1X/DAY
     Dates: start: 20090601
  2. LIPITOR [Suspect]
     Indication: CARDIAC OPERATION
     Dosage: 80 MG, 1X/DAY
     Dates: start: 20000101

REACTIONS (16)
  - BLOOD GLUCOSE ABNORMAL [None]
  - CORONARY ARTERY OCCLUSION [None]
  - DYSKINESIA [None]
  - FATIGUE [None]
  - FEELING ABNORMAL [None]
  - FRUSTRATION [None]
  - GAIT DISTURBANCE [None]
  - HAEMOGLOBIN DECREASED [None]
  - HAEMORRHAGE [None]
  - HEART RATE INCREASED [None]
  - HYPOAESTHESIA FACIAL [None]
  - MEMORY IMPAIRMENT [None]
  - MUSCLE SPASMS [None]
  - MUSCULOSKELETAL PAIN [None]
  - MUSCULOSKELETAL STIFFNESS [None]
  - PARAESTHESIA [None]
